FAERS Safety Report 8579488-0 (Version None)
Quarter: 2012Q3

REPORT INFORMATION
  Report Type: 
  Country: None (occurrence: None)
  Receive Date: 20120726
  Receipt Date: 20120718
  Transmission Date: 20120928
  Serious: Yes (Other)
  Sender: FDA-Public Use
  Company Number: 2012MA008992

PATIENT
  Sex: Male

DRUGS (3)
  1. DICLOFENAC SODIUM [Suspect]
     Indication: PRODUCT USED FOR UNKNOWN INDICATION
     Dosage: 75 MG;BID
  2. OMEPRAZOLE [Concomitant]
  3. ACENOCOUMAROL [Concomitant]

REACTIONS (3)
  - MIGRAINE [None]
  - HALLUCINATION [None]
  - CORNEAL DISORDER [None]
